FAERS Safety Report 18023338 (Version 4)
Quarter: 2020Q3

REPORT INFORMATION
  Report Type: Report from Study
  Country: CA (occurrence: CA)
  Receive Date: 20200714
  Receipt Date: 20200731
  Transmission Date: 20201103
  Serious: Yes (Hospitalization)
  Sender: FDA-Public Use
  Company Number: NVSC2020CA193690

PATIENT
  Age: 50 Year
  Sex: Female
  Weight: 89.6 kg

DRUGS (15)
  1. NYSTATIN. [Concomitant]
     Active Substance: NYSTATIN
     Indication: ORAL CANDIDIASIS
     Dosage: 100000 U/ML, UNK
     Route: 065
     Dates: start: 20200429, end: 20200721
  2. VITAMIN D [Concomitant]
     Active Substance: VITAMIN D NOS
     Indication: GENERAL PHYSICAL CONDITION
     Dosage: 1000 IU, QD
     Route: 048
     Dates: start: 20190209
  3. PANTOPRAZOLE [Concomitant]
     Active Substance: PANTOPRAZOLE
     Indication: GASTROOESOPHAGEAL REFLUX DISEASE
     Dosage: 40 MG, QD
     Route: 048
     Dates: start: 20191109
  4. TYLENOL ARTHRITIS PAIN [Concomitant]
     Active Substance: ACETAMINOPHEN
     Indication: ANKYLOSING SPONDYLITIS
     Dosage: 1300 MG, BID
     Route: 048
     Dates: start: 20190305
  5. DULOXETINE. [Concomitant]
     Active Substance: DULOXETINE
     Indication: FIBROMYALGIA
     Dosage: 90 MG, QD
     Route: 048
     Dates: start: 20190316
  6. SYSTANE (HYPROMELLOSE 2910 (4000 MPA.S)) [Concomitant]
     Active Substance: HYPROMELLOSE 2910 (4000 MPA.S)
     Indication: DRY EYE
     Dosage: UNK
     Route: 065
     Dates: start: 20160101
  7. TRAMACET [Concomitant]
     Active Substance: ACETAMINOPHEN\TRAMADOL
     Indication: ANKYLOSING SPONDYLITIS
     Dosage: 1 TAB, PRN
     Route: 048
     Dates: start: 20200511
  8. METONIA [Concomitant]
     Active Substance: METOCLOPRAMIDE
     Indication: GASTROOESOPHAGEAL REFLUX DISEASE
     Dosage: UNK
     Route: 065
     Dates: start: 20200709
  9. PREDNISONE. [Concomitant]
     Active Substance: PREDNISONE
     Indication: ANKYLOSING SPONDYLITIS
     Dosage: 15 MG, QD
     Route: 048
     Dates: start: 20200422, end: 20200708
  10. GABAPENTIN. [Concomitant]
     Active Substance: GABAPENTIN
     Indication: ANKYLOSING SPONDYLITIS
     Dosage: UNK
     Route: 065
     Dates: start: 20190128
  11. DULOXETINE. [Concomitant]
     Active Substance: DULOXETINE
     Indication: ANKYLOSING SPONDYLITIS
  12. TYLENOL ARTHRITIS PAIN [Concomitant]
     Active Substance: ACETAMINOPHEN
     Indication: OLIGOARTHRITIS
  13. PREDNISONE. [Concomitant]
     Active Substance: PREDNISONE
     Dosage: UNK
     Route: 048
     Dates: start: 20200709, end: 20200723
  14. SECUKINUMAB. [Suspect]
     Active Substance: SECUKINUMAB
     Indication: ANKYLOSING SPONDYLITIS
     Dosage: 300 MG, Q4S
     Route: 058
     Dates: start: 20190416, end: 20200219
  15. TRAMACET [Concomitant]
     Active Substance: ACETAMINOPHEN\TRAMADOL
     Indication: CROHN^S DISEASE

REACTIONS (1)
  - Crohn^s disease [Not Recovered/Not Resolved]

NARRATIVE: CASE EVENT DATE: 20200705
